FAERS Safety Report 6477740-6 (Version None)
Quarter: 2009Q4

REPORT INFORMATION
  Report Type: 
  Country: None (occurrence: None)
  Receive Date: 20091203
  Receipt Date: 20091203
  Transmission Date: 20100525
  Serious: Yes (Life-Threatening)
  Sender: FDA-Public Use
  Company Number: None

PATIENT
  Sex: Female
  Weight: 62.1428 kg

DRUGS (2)
  1. TOPIRAMATE [Suspect]
     Indication: ANXIETY
     Dosage: 25MG 2X/DAY PO
     Route: 048
     Dates: start: 20091110, end: 20091202
  2. TOPIRAMATE [Suspect]
     Indication: INSOMNIA
     Dosage: 25MG 2X/DAY PO
     Route: 048
     Dates: start: 20091110, end: 20091202

REACTIONS (1)
  - SUICIDAL IDEATION [None]
